FAERS Safety Report 4760330-0 (Version None)
Quarter: 2005Q3

REPORT INFORMATION
  Report Type: 
  Country: None (occurrence: None)
  Receive Date: 20050831
  Receipt Date: 20050818
  Transmission Date: 20060218
  Serious: Yes (Other)
  Sender: FDA-Public Use
  Company Number: 2005-BP-14294RO

PATIENT
  Age: 42 Year
  Sex: Female

DRUGS (2)
  1. LITHIUM CARBONATE [Suspect]
     Indication: BIPOLAR DISORDER
     Dosage: 800 MG DAILY, PO
     Route: 048
  2. RISPERIDONE (RISPERIDONE) [Suspect]
     Indication: BIPOLAR DISORDER
     Dosage: 2 TO 5 MG

REACTIONS (3)
  - AKATHISIA [None]
  - DYSKINESIA [None]
  - EXTRAPYRAMIDAL DISORDER [None]
